FAERS Safety Report 16890992 (Version 3)
Quarter: 2019Q4

REPORT INFORMATION
  Report Type: Spontaneous
  Country: US (occurrence: US)
  Receive Date: 20191007
  Receipt Date: 20191028
  Transmission Date: 20200122
  Serious: Yes (Other)
  Sender: FDA-Public Use
  Company Number: US-AEGERION PHARMACEUTICAL, INC-AEGR004460

PATIENT
  Age: 3 Year
  Sex: Female
  Weight: 13.52 kg

DRUGS (3)
  1. MULTIVITAMINES WITH IRON           /02170101/ [Concomitant]
     Indication: PRODUCT USED FOR UNKNOWN INDICATION
     Dosage: UNK, QD
     Route: 048
  2. MYALEPT [Suspect]
     Active Substance: METRELEPTIN
     Dosage: 0.54 MG, QD
     Route: 058
     Dates: start: 201908
  3. MYALEPT [Suspect]
     Active Substance: METRELEPTIN
     Indication: CONGENITAL GENERALISED LIPODYSTROPHY
     Dosage: 0.54 MG, QD
     Route: 058
     Dates: start: 201711, end: 201903

REACTIONS (6)
  - Hypercholesterolaemia [Unknown]
  - Decreased appetite [Unknown]
  - Hypertriglyceridaemia [Unknown]
  - Hepatic steatosis [Unknown]
  - Weight decreased [Unknown]
  - Product dose omission [Unknown]

NARRATIVE: CASE EVENT DATE: 201901
